FAERS Safety Report 5307734-5 (Version None)
Quarter: 2007Q2

REPORT INFORMATION
  Report Type: 
  Country: None (occurrence: None)
  Receive Date: 20070418
  Receipt Date: 20070406
  Transmission Date: 20071010
  Serious: Yes (Hospitalization)
  Sender: FDA-Public Use
  Company Number: 2007-00837

PATIENT
  Age: 62 Year
  Sex: Male

DRUGS (4)
  1. VELCADE [Suspect]
     Indication: MULTIPLE MYELOMA
     Dates: end: 20070301
  2. NORVASC [Concomitant]
  3. ATENOLOL [Concomitant]
  4. BACTRIM [Concomitant]

REACTIONS (6)
  - ASTHENIA [None]
  - DYSPHAGIA [None]
  - FAILURE TO THRIVE [None]
  - PYREXIA [None]
  - VOCAL CORD PARALYSIS [None]
  - WHITE BLOOD CELL COUNT DECREASED [None]
